FAERS Safety Report 23536169 (Version 2)
Quarter: 2024Q1

REPORT INFORMATION
  Report Type: Report from Study
  Country: US (occurrence: US)
  Receive Date: 20240219
  Receipt Date: 20240312
  Transmission Date: 20240410
  Serious: Yes (Hospitalization)
  Sender: FDA-Public Use
  Company Number: US-ARGENX-2024-ARGX-US000857

PATIENT

DRUGS (1)
  1. VYVGART HYTRULO [Suspect]
     Active Substance: EFGARTIGIMOD ALFA\HYALURONIDASE-QVFC
     Indication: Myasthenia gravis
     Dosage: 1,008MG/5.3ML
     Route: 058

REACTIONS (6)
  - Dysphagia [Recovered/Resolved]
  - Myasthenia gravis [Unknown]
  - Nasal congestion [Recovered/Resolved]
  - Cough [Recovered/Resolved]
  - Headache [Recovered/Resolved]
  - Nasopharyngitis [Recovered/Resolved]

NARRATIVE: CASE EVENT DATE: 20240304
